FAERS Safety Report 8534528-X (Version None)
Quarter: 2012Q3

REPORT INFORMATION
  Report Type: 
  Country: None (occurrence: None)
  Receive Date: 20120724
  Receipt Date: 20120718
  Transmission Date: 20120928
  Serious: Yes (Other)
  Sender: FDA-Public Use
  Company Number: US-PURDUE-USA-2012-0090154

PATIENT
  Sex: Female

DRUGS (1)
  1. OXYCONTIN [Suspect]
     Indication: PRODUCT USED FOR UNKNOWN INDICATION
     Dosage: 40 MG, BID
     Route: 048

REACTIONS (8)
  - DIARRHOEA [None]
  - MALAISE [None]
  - RHEUMATOID ARTHRITIS [None]
  - PAIN [None]
  - UNEVALUABLE EVENT [None]
  - ASTHENIA [None]
  - NAUSEA [None]
  - FEELING ABNORMAL [None]
